FAERS Safety Report 24366815 (Version 1)
Quarter: 2024Q3

REPORT INFORMATION
  Report Type: Report from Study
  Country: BR (occurrence: BR)
  Receive Date: 20240926
  Receipt Date: 20240926
  Transmission Date: 20241017
  Serious: Yes (Disabling)
  Sender: TAKEDA
  Company Number: BR-TAKEDA-2023TUS118777

PATIENT
  Age: 43 Year
  Sex: Female

DRUGS (2)
  1. VEDOLIZUMAB [Suspect]
     Active Substance: VEDOLIZUMAB
     Indication: Colitis ulcerative
     Dosage: 300 MILLIGRAM
     Route: 042
     Dates: start: 20231204
  2. DESOGESTREL [Concomitant]
     Active Substance: DESOGESTREL
     Dosage: UNK

REACTIONS (5)
  - Intervertebral disc protrusion [Not Recovered/Not Resolved]
  - Product preparation issue [Unknown]
  - Loss of personal independence in daily activities [Unknown]
  - Product prescribing error [Unknown]
  - Influenza [Not Recovered/Not Resolved]

NARRATIVE: CASE EVENT DATE: 20240502
